FAERS Safety Report 9496177 (Version 1)
Quarter: 2013Q3

REPORT INFORMATION
  Report Type: Spontaneous
  Country: AT (occurrence: None)
  Receive Date: 20130829
  Receipt Date: 20130829
  Transmission Date: 20140515
  Serious: Yes (Disabling)
  Sender: FDA-Public Use
  Company Number: 1860662

PATIENT
  Age: 60 Year
  Sex: Female

DRUGS (3)
  1. OXALIPLATIN [Suspect]
     Indication: COLON CANCER
     Route: 041
  2. PREDNISOLONE [Suspect]
     Indication: LARYNGOSPASM
     Route: 042
  3. PREDNISOLONE [Suspect]
     Indication: BRONCHOSPASM
     Route: 042

REACTIONS (20)
  - Asthenia [None]
  - Eyelid ptosis [None]
  - Ophthalmoplegia [None]
  - Dropped head syndrome [None]
  - Dysphagia [None]
  - Dysarthria [None]
  - Respiratory failure [None]
  - Muscular weakness [None]
  - Hypokalaemia [None]
  - Hypocalcaemia [None]
  - Hypomagnesaemia [None]
  - Dyspnoea [None]
  - Throat tightness [None]
  - Muscle spasms [None]
  - Tremor [None]
  - Metabolic myopathy [None]
  - Neuromyopathy [None]
  - Electrolyte imbalance [None]
  - Potentiating drug interaction [None]
  - Areflexia [None]
